FAERS Safety Report 24006469 (Version 2)
Quarter: 2024Q3

REPORT INFORMATION
  Report Type: Spontaneous
  Country: DE (occurrence: DE)
  Receive Date: 20240624
  Receipt Date: 20240702
  Transmission Date: 20241016
  Serious: Yes (Hospitalization, Other)
  Sender: MYLAN
  Company Number: DE-LESVI-2024003204

PATIENT
  Sex: Female

DRUGS (16)
  1. BACLOFEN [Suspect]
     Active Substance: BACLOFEN
     Indication: Product used for unknown indication
     Dosage: 20 MILLIGRAM, QID,  4 X (2X 10MG)
     Route: 065
  2. BACLOFEN [Suspect]
     Active Substance: BACLOFEN
     Indication: Product used for unknown indication
     Dosage: 50 MILLIGRAM, QID, 4 X (2 X 25MG)
     Route: 065
  3. BACLOFEN [Suspect]
     Active Substance: BACLOFEN
     Indication: Product used for unknown indication
     Dosage: UNK
     Route: 065
  4. PANTOPRAZOLE [Concomitant]
     Active Substance: PANTOPRAZOLE
     Indication: Product used for unknown indication
     Dosage: 1 DOSAGE FORM, QD, 1X IN THE MORNING
     Route: 065
  5. VITAMIN D [Concomitant]
     Active Substance: VITAMIN D NOS
     Indication: Product used for unknown indication
     Dosage: FRIDAYS AT NOON, QW
     Route: 065
  6. DALFAMPRIDINE [Concomitant]
     Active Substance: DALFAMPRIDINE
     Indication: Product used for unknown indication
     Dosage: BID, 1X IN THE MORNING, 1X IN THE AFTERNOON, 10
     Route: 065
  7. KOCHSALZ [Concomitant]
     Indication: Product used for unknown indication
     Dosage: 1 DOSAGE FORM, QD 1X AT NOON
     Route: 065
  8. EZETIMIBE\SIMVASTATIN [Concomitant]
     Active Substance: EZETIMIBE\SIMVASTATIN
     Indication: Product used for unknown indication
     Dosage: 1 DOSAGE FORM, QD, 1X IN THE EVENING, 10/20
     Route: 065
  9. CETIRIZINE [Concomitant]
     Active Substance: CETIRIZINE HYDROCHLORIDE
     Indication: Product used for unknown indication
     Dosage: 1 DOSAGE FORM, QD, 1X IN THE EVENING, 10
     Route: 065
  10. DAPAGLIFLOZIN [Concomitant]
     Active Substance: DAPAGLIFLOZIN
     Indication: Product used for unknown indication
     Dosage: 1 DOSAGE FORM, QD, 1X IN THE MORNING
     Route: 065
  11. AARANE [Concomitant]
     Active Substance: CROMOLYN SODIUM
     Indication: Product used for unknown indication
     Dosage: UNK (IN AN EMERGENCY IF REQUIRED)
     Route: 065
  12. IBU [Concomitant]
     Active Substance: IBUPROFEN
     Indication: Product used for unknown indication
     Dosage: UNK, PRN, (IF REQUIRED, MAX 4/DAY)
     Route: 065
  13. ETORICOX ABZ [Concomitant]
     Indication: Product used for unknown indication
     Dosage: 1 DOSAGE FORM, BID, 1X IN THE MORNING, 1X IN THE EVENING
     Route: 065
  14. METFORMIN [Concomitant]
     Active Substance: METFORMIN HYDROCHLORIDE
     Indication: Product used for unknown indication
     Dosage: 2 DOSAGE FORM, TID, 2X IN THE MORNING, 2X AT NOON, 2X IN THE EVENING, 500
     Route: 065
  15. GABAPENTIN [Concomitant]
     Active Substance: GABAPENTIN
     Indication: Product used for unknown indication
     Dosage: 1 DOSAGE FORM, TID, 1X IN THE MORNING, 1X AT NOON, 1X AT NIGHT
     Route: 065
  16. Spasmex [Concomitant]
     Indication: Product used for unknown indication
     Dosage: 1 DOSAGE FORM, TID, IN THE MORNING, AT NOON, AT NIGHT (1-1-0-1)
     Route: 065

REACTIONS (6)
  - Disturbance in attention [Recovered/Resolved]
  - Unresponsive to stimuli [Recovered/Resolved]
  - Syncope [Unknown]
  - Injury [Unknown]
  - Accidental overdose [Unknown]
  - Product availability issue [Unknown]
